FAERS Safety Report 7733656-6 (Version None)
Quarter: 2011Q3

REPORT INFORMATION
  Report Type: 
  Country: None (occurrence: None)
  Receive Date: 20110907
  Receipt Date: 20110831
  Transmission Date: 20111222
  Serious: Yes (Other)
  Sender: FDA-Public Use
  Company Number: US-SANOFI-AVENTIS-2011SA056688

PATIENT
  Age: 67 Year
  Sex: Male

DRUGS (4)
  1. JEVTANA KIT [Suspect]
     Route: 041
     Dates: start: 20110111, end: 20110111
  2. NEUPOGEN [Concomitant]
     Dates: start: 20101214, end: 20101214
  3. NEUPOGEN [Concomitant]
     Dates: start: 20110111, end: 20110111
  4. JEVTANA KIT [Suspect]
     Indication: PROSTATE CANCER
     Route: 041
     Dates: start: 20101214, end: 20101214

REACTIONS (3)
  - CONDITION AGGRAVATED [None]
  - DISEASE PROGRESSION [None]
  - TOXICITY TO VARIOUS AGENTS [None]
